FAERS Safety Report 9514101 (Version 2)
Quarter: 2014Q1

REPORT INFORMATION
  Report Type: Report from Study
  Country: CA (occurrence: CA)
  Receive Date: 20130910
  Receipt Date: 20140320
  Transmission Date: 20141002
  Serious: Yes (Life-Threatening)
  Sender: FDA-Public Use
  Company Number: CA-ROCHE-1271038

PATIENT
  Sex: Male
  Weight: 64 kg

DRUGS (13)
  1. RITUXAN [Suspect]
     Indication: VASCULITIS
     Dosage: FREQUENCY:  DAY 1 AND DAY 15??LAST DOSE ON 21/OCT/2013,
     Route: 042
     Dates: start: 20120719
  2. RITUXAN [Suspect]
     Indication: AMYLOIDOSIS
  3. NAPROXEN [Suspect]
     Indication: PRODUCT USED FOR UNKNOWN INDICATION
     Route: 065
  4. AMITRIPTYLINE [Suspect]
     Indication: PRODUCT USED FOR UNKNOWN INDICATION
     Route: 065
  5. RENEDIL [Suspect]
     Indication: PRODUCT USED FOR UNKNOWN INDICATION
     Route: 065
  6. QUININE [Suspect]
     Indication: PRODUCT USED FOR UNKNOWN INDICATION
     Route: 065
  7. DIPHENHYDRAMINE HCL [Concomitant]
     Indication: PREMEDICATION
     Route: 048
     Dates: start: 20120719
  8. ACETAMINOPHEN [Concomitant]
     Indication: PREMEDICATION
     Route: 048
     Dates: start: 20120719
  9. PREDNISONE [Concomitant]
     Indication: PREMEDICATION
     Route: 048
     Dates: start: 20120719
  10. HYDROMORPHONE [Concomitant]
  11. AZATHIOPRINE [Concomitant]
  12. TECTA [Concomitant]
  13. ALENDRONATE [Concomitant]

REACTIONS (2)
  - Cerebral haemorrhage [Not Recovered/Not Resolved]
  - Off label use [Unknown]
